FAERS Safety Report 14704243 (Version 1)
Quarter: 2018Q2

REPORT INFORMATION
  Report Type: Spontaneous
  Country: US (occurrence: US)
  Receive Date: 20180402
  Receipt Date: 20180402
  Transmission Date: 20180711
  Serious: No
  Sender: FDA-Public Use
  Company Number: US-ALLERGAN-1724082US

PATIENT
  Age: 70 Year
  Sex: Female

DRUGS (2)
  1. MESALAMINE. [Suspect]
     Active Substance: MESALAMINE
     Indication: COLITIS ULCERATIVE
     Dosage: UNK
     Route: 065
     Dates: end: 20170522
  2. DELZICOL [Suspect]
     Active Substance: MESALAMINE
     Indication: COLITIS ULCERATIVE
     Dosage: 2 DF, TID
     Route: 048
     Dates: start: 201703

REACTIONS (1)
  - Medication residue present [Unknown]

NARRATIVE: CASE EVENT DATE: 201703
